FAERS Safety Report 8835825 (Version 3)
Quarter: 2013Q1

REPORT INFORMATION
  Report Type: Report from Study
  Country: JP (occurrence: JP)
  Receive Date: 20121011
  Receipt Date: 20130122
  Transmission Date: 20140127
  Serious: Yes (Hospitalization)
  Sender: FDA-Public Use
  Company Number: JP-GLAXOSMITHKLINE-B0835779A

PATIENT
  Age: 63 Year
  Sex: Female
  Weight: 54 kg

DRUGS (13)
  1. TYKERB [Suspect]
     Indication: BREAST CANCER
     Route: 048
     Dates: start: 20120731, end: 20120910
  2. TYKERB [Suspect]
     Indication: BREAST CANCER
     Route: 048
     Dates: start: 20120911, end: 20120928
  3. TAXOL [Suspect]
     Indication: BREAST CANCER
     Route: 042
     Dates: start: 20120911, end: 20120925
  4. HERCEPTIN [Concomitant]
     Indication: BREAST CANCER
     Route: 042
     Dates: start: 20120731
  5. HERCEPTIN [Concomitant]
     Indication: BREAST CANCER
     Route: 042
     Dates: end: 20120925
  6. FEMARA [Concomitant]
     Indication: BREAST CANCER
     Dosage: 2.5MG PER DAY
     Route: 048
     Dates: start: 20120731
  7. NADIFLOXACIN [Concomitant]
     Indication: DERMATITIS ACNEIFORM
     Route: 061
     Dates: start: 20120807
  8. RINDERON-V [Concomitant]
     Indication: DERMATITIS ACNEIFORM
     Route: 061
     Dates: start: 20120807
  9. EPINASTINE [Concomitant]
     Indication: PRURITUS
     Dosage: 1IUAX PER DAY
     Route: 048
     Dates: start: 20120821
  10. HIRUDOID [Concomitant]
     Indication: DRY SKIN
     Route: 061
     Dates: start: 20120821
  11. HYALEIN [Concomitant]
     Indication: CONJUNCTIVITIS
     Route: 031
     Dates: start: 20120821
  12. KENALOG [Concomitant]
     Indication: STOMATITIS
     Route: 061
     Dates: start: 20120904
  13. REBAMIPIDE [Concomitant]
     Indication: STOMATITIS
     Dosage: 1IUAX THREE TIMES PER DAY
     Route: 048
     Dates: start: 20120911

REACTIONS (3)
  - Dehydration [Recovered/Resolved]
  - Diarrhoea [Recovered/Resolved]
  - Vomiting [Recovered/Resolved]
